FAERS Safety Report 24906877 (Version 1)
Quarter: 2025Q1

REPORT INFORMATION
  Report Type: Spontaneous
  Country: US (occurrence: US)
  Receive Date: 20250130
  Receipt Date: 20250130
  Transmission Date: 20250409
  Serious: No
  Sender: SANOFI AVENTIS
  Company Number: US-SA-2025SA029238

PATIENT
  Age: 40 Year
  Sex: Female

DRUGS (1)
  1. DUPIXENT [Suspect]
     Active Substance: DUPILUMAB
     Indication: Neurodermatitis
     Dosage: 300MG+QOW
     Route: 058

REACTIONS (5)
  - Cough [Unknown]
  - Wound [Unknown]
  - Rash [Unknown]
  - Dry skin [Unknown]
  - Epistaxis [Unknown]
